FAERS Safety Report 4998001-8 (Version None)
Quarter: 2006Q2

REPORT INFORMATION
  Report Type: 
  Country: None (occurrence: None)
  Receive Date: 20060508
  Receipt Date: 20060424
  Transmission Date: 20061013
  Serious: Yes (Death, Hospitalization, Other)
  Sender: FDA-Public Use
  Company Number: HQWYE968015DEC04

PATIENT
  Age: 71 Year
  Sex: Female
  Weight: 59.2 kg

DRUGS (3)
  1. PREMPRO [Suspect]
  2. PREMARIN [Suspect]
  3. PROVERA [Suspect]

REACTIONS (14)
  - ABDOMINAL DISTENSION [None]
  - ABDOMINAL PAIN [None]
  - CONSTIPATION [None]
  - FEBRILE NEUTROPENIA [None]
  - INTESTINAL ADHESION LYSIS [None]
  - LYMPHADENOPATHY [None]
  - METASTATIC NEOPLASM [None]
  - MYOCARDIAL INFARCTION [None]
  - OVARIAN CANCER METASTATIC [None]
  - POST PROCEDURAL COMPLICATION [None]
  - POSTOPERATIVE ADHESION [None]
  - RECURRENT CANCER [None]
  - SMALL INTESTINAL OBSTRUCTION [None]
  - SMALL INTESTINAL RESECTION [None]
